FAERS Safety Report 9830127 (Version 1)
Quarter: 2014Q1

REPORT INFORMATION
  Report Type: Spontaneous
  Country: US (occurrence: US)
  Receive Date: 20140120
  Receipt Date: 20140120
  Transmission Date: 20141002
  Serious: No
  Sender: FDA-Public Use
  Company Number: US-009507513-1401USA004368

PATIENT
  Sex: Female

DRUGS (1)
  1. NUVARING [Suspect]
     Indication: CONTRACEPTION
     Dosage: ONE RING USED FOR 3 WEEKS FOLLOWED BY A ONE WEEK RING FREE INTERVAL, STRENGHT .015/.12
     Route: 067

REACTIONS (1)
  - Discomfort [Unknown]
